FAERS Safety Report 4358658-1 (Version None)
Quarter: 2004Q2

REPORT INFORMATION
  Report Type: 
  Country: None (occurrence: None)
  Receive Date: 20040511
  Receipt Date: 20040428
  Transmission Date: 20050107
  Serious: Yes (Congenital Anomaly)
  Sender: FDA-Public Use
  Company Number: 2003-BP-10637BP

PATIENT
  Age: 0 Day
  Sex: Male

DRUGS (5)
  1. VIRAMUNE [Suspect]
     Indication: HIV INFECTION
     Dosage: 400 MG (200 MG, 2 IN 1 D), IU
     Route: 015
     Dates: start: 20031013, end: 20031123
  2. VIRAMUNE [Suspect]
     Indication: HIV INFECTION
     Dosage: 200 MG (200 MG, 1 IN 1 D) PO
     Route: 048
     Dates: start: 20030930, end: 20031013
  3. COMBIVIR (ZIDOVUDINE W/ LAMIOVUDINE) [Concomitant]
  4. ZIDOVUDINE [Concomitant]
  5. FOLATE SUPPLEMENT [Concomitant]

REACTIONS (7)
  - ADACTYLY [None]
  - CONGENITAL TONGUE ANOMALY [None]
  - LIMB MALFORMATION [None]
  - MATERNAL DRUGS AFFECTING FOETUS [None]
  - MICROGENIA [None]
  - MUSCULOSKELETAL DISORDER [None]
  - PREMATURE BABY [None]
